FAERS Safety Report 18035562 (Version 2)
Quarter: 2021Q1

REPORT INFORMATION
  Report Type: Spontaneous
  Country: IT (occurrence: IT)
  Receive Date: 20200717
  Receipt Date: 20210331
  Transmission Date: 20210419
  Serious: Yes (Other)
  Sender: FDA-Public Use
  Company Number: IT-AUROBINDO-AUR-APL-2020-025797

PATIENT
  Age: 16 Year
  Sex: Male

DRUGS (2)
  1. ARIPIPRAZOLE TABLETS [Suspect]
     Active Substance: ARIPIPRAZOLE
     Indication: DEPENDENT PERSONALITY DISORDER
     Dosage: 10 MILLILITER, ONCE A DAY
     Route: 065
  2. ARIPIPRAZOLE TABLETS [Suspect]
     Active Substance: ARIPIPRAZOLE
     Indication: DEPRESSION

REACTIONS (6)
  - Product use in unapproved indication [Unknown]
  - Social problem [Unknown]
  - Mental disorder [Not Recovered/Not Resolved]
  - Decreased interest [Unknown]
  - Social avoidant behaviour [Unknown]
  - Asthenia [Unknown]
